FAERS Safety Report 11988506 (Version 1)
Quarter: 2016Q1

REPORT INFORMATION
  Report Type: Spontaneous
  Country: PL (occurrence: PL)
  Receive Date: 20160202
  Receipt Date: 20160202
  Transmission Date: 20160526
  Serious: Yes (Other)
  Sender: FDA-Public Use
  Company Number: PL-PFIZER INC-2016044123

PATIENT
  Age: 68 Year
  Sex: Male

DRUGS (3)
  1. FUROSEMID [Suspect]
     Active Substance: FUROSEMIDE
  2. POLOPIRYNA [Suspect]
     Active Substance: ASPIRIN
  3. FRAGMIN [Suspect]
     Active Substance: DALTEPARIN SODIUM
     Indication: THROMBOSIS PROPHYLAXIS
     Dosage: 5000 IU, 1X/DAY
     Route: 058
     Dates: start: 20150927, end: 20150928

REACTIONS (2)
  - Chills [Unknown]
  - Visual impairment [Unknown]

NARRATIVE: CASE EVENT DATE: 20150928
